FAERS Safety Report 10221248 (Version 1)
Quarter: 2014Q2

REPORT INFORMATION
  Report Type: Spontaneous
  Country: US (occurrence: US)
  Receive Date: 20140606
  Receipt Date: 20140606
  Transmission Date: 20141212
  Serious: No
  Sender: FDA-Public Use
  Company Number: US-GLAXOSMITHKLINE-A1068694A

PATIENT
  Age: 85 Year
  Sex: Male

DRUGS (4)
  1. BREO ELLIPTA [Suspect]
     Indication: DYSPNOEA
     Dosage: 1PUFF PER DAY
     Route: 055
     Dates: start: 20140408
  2. BLOOD PRESSURE MEDICATION [Concomitant]
  3. REMERON [Concomitant]
  4. AXIRON [Concomitant]

REACTIONS (1)
  - Drug ineffective [Unknown]
